FAERS Safety Report 23366332 (Version 1)
Quarter: 2024Q1

REPORT INFORMATION
  Report Type: Spontaneous
  Country: JP (occurrence: JP)
  Receive Date: 20240104
  Receipt Date: 20240104
  Transmission Date: 20240410
  Serious: Yes (Other)
  Sender: FDA-Public Use
  Company Number: JP-ONO-2022JP028113AA

PATIENT
  Age: 68 Year
  Sex: Male
  Weight: 60.3 kg

DRUGS (13)
  1. EMEND [Suspect]
     Active Substance: APREPITANT
     Indication: Prophylaxis of nausea and vomiting
     Dosage: 80 MG
     Route: 048
     Dates: start: 20220107, end: 20220127
  2. OPDIVO [Suspect]
     Active Substance: NIVOLUMAB
     Indication: Non-small cell lung cancer recurrent
     Dosage: 360 MG
     Route: 041
     Dates: start: 20220106, end: 20220127
  3. OPDIVO [Suspect]
     Active Substance: NIVOLUMAB
     Dosage: 360 MG
     Route: 041
     Dates: start: 20220331
  4. OPDIVO [Suspect]
     Active Substance: NIVOLUMAB
     Dosage: 360 MG
     Route: 041
     Dates: end: 20230413
  5. YERVOY [Suspect]
     Active Substance: IPILIMUMAB
     Indication: Non-small cell lung cancer recurrent
     Dosage: 63.4 MG
     Route: 041
     Dates: start: 20220106, end: 20220106
  6. YERVOY [Suspect]
     Active Substance: IPILIMUMAB
     Dosage: 63.4 MG
     Route: 041
     Dates: start: 20220331
  7. YERVOY [Suspect]
     Active Substance: IPILIMUMAB
     Dosage: 63.4 MG
     Route: 041
     Dates: end: 20230413
  8. LOXOPROFEN SODIUM [Suspect]
     Active Substance: LOXOPROFEN SODIUM
     Dosage: UNK
     Route: 065
  9. CARBOPLATIN [Concomitant]
     Active Substance: CARBOPLATIN
     Indication: Non-small cell lung cancer recurrent
     Dosage: 631.8 MG
     Route: 041
     Dates: start: 20220106, end: 20220127
  10. PEMETREXED [Concomitant]
     Active Substance: PEMETREXED
     Indication: Non-small cell lung cancer recurrent
     Dosage: 864 MG
     Route: 041
     Dates: start: 20220106, end: 20220127
  11. DEXAMETHASONE SODIUM PHOSPHATE [Concomitant]
     Active Substance: DEXAMETHASONE PHOSPHATE\DEXAMETHASONE SODIUM PHOSPHATE
     Indication: Prophylaxis
     Dosage: 9.9 MG
     Route: 041
     Dates: start: 20220106, end: 20220127
  12. ALOXI [Concomitant]
     Active Substance: PALONOSETRON HYDROCHLORIDE
     Indication: Prophylaxis
     Dosage: 0.75 MG
     Route: 041
     Dates: start: 20220106, end: 20220127
  13. VITAMINS [Concomitant]
     Active Substance: VITAMINS
     Indication: Prophylaxis
     Dosage: 1 GRAM, EVERYDAY
     Route: 048
     Dates: start: 20220107, end: 20220307

REACTIONS (3)
  - Tubulointerstitial nephritis [Recovered/Resolved]
  - Hypophysitis [Unknown]
  - Hypopituitarism [Recovering/Resolving]

NARRATIVE: CASE EVENT DATE: 20220214
